FAERS Safety Report 4487940-2 (Version None)
Quarter: 2004Q4

REPORT INFORMATION
  Report Type: 
  Country: None (occurrence: None)
  Receive Date: 20041028
  Receipt Date: 20040820
  Transmission Date: 20050328
  Serious: Yes (Death)
  Sender: FDA-Public Use
  Company Number: PHBS2004JP10892

PATIENT
  Age: 70 Year
  Sex: Female

DRUGS (1)
  1. STARSIS [Suspect]
     Route: 048

REACTIONS (3)
  - CHOLANGITIS [None]
  - JAUNDICE [None]
  - SEPSIS [None]
